FAERS Safety Report 15599496 (Version 4)
Quarter: 2022Q1

REPORT INFORMATION
  Report Type: Spontaneous
  Country: IT (occurrence: IT)
  Receive Date: 20181108
  Receipt Date: 20220314
  Transmission Date: 20220423
  Serious: Yes (Death, Hospitalization, Other)
  Sender: FDA-Public Use
  Company Number: IT-CELGENE-ITA-20181100985

PATIENT
  Age: 81 Year
  Sex: Male

DRUGS (5)
  1. POMALIDOMIDE [Suspect]
     Active Substance: POMALIDOMIDE
     Indication: Plasma cell myeloma
     Route: 048
     Dates: start: 20161228, end: 20171227
  2. DEXAMETHASONE [Suspect]
     Active Substance: DEXAMETHASONE
     Indication: Plasma cell myeloma
     Route: 048
     Dates: start: 20161228, end: 20171227
  3. DEXAMETHASONE [Suspect]
     Active Substance: DEXAMETHASONE
     Route: 048
     Dates: start: 20170518, end: 20171213
  4. NIVOLUMAB [Concomitant]
     Active Substance: NIVOLUMAB
     Indication: Plasma cell myeloma
     Route: 041
     Dates: start: 20161228, end: 20170420
  5. NIVOLUMAB [Concomitant]
     Active Substance: NIVOLUMAB
     Route: 041
     Dates: start: 20170518, end: 20171227

REACTIONS (1)
  - Sepsis [Fatal]

NARRATIVE: CASE EVENT DATE: 20180805
